FAERS Safety Report 5833752-4 (Version None)
Quarter: 2008Q3

REPORT INFORMATION
  Report Type: 
  Country: None (occurrence: None)
  Receive Date: 20080805
  Receipt Date: 20080728
  Transmission Date: 20090109
  Serious: Yes (Death, Other)
  Sender: FDA-Public Use
  Company Number: US-ASTRAZENECA-2006UW22490

PATIENT
  Age: 62 Year
  Sex: Female
  Weight: 111.1 kg

DRUGS (2)
  1. SEROQUEL [Suspect]
     Indication: SCHIZOPHRENIA
     Route: 048
     Dates: start: 20040915, end: 20050101
  2. SEROQUEL [Suspect]
     Indication: DEPRESSION
     Route: 048
     Dates: start: 20040915, end: 20050101

REACTIONS (5)
  - CONVULSION [None]
  - DEATH [None]
  - DIABETES MELLITUS [None]
  - NEOPLASM MALIGNANT [None]
  - THROMBOSIS [None]
